FAERS Safety Report 22371911 (Version 5)
Quarter: 2023Q4

REPORT INFORMATION
  Report Type: Spontaneous
  Country: US (occurrence: US)
  Receive Date: 20230526
  Receipt Date: 20231114
  Transmission Date: 20240110
  Serious: No
  Sender: FDA-Public Use
  Company Number: US-PFIZER INC-PV202300093299

PATIENT
  Age: 66 Year
  Sex: Female

DRUGS (2)
  1. BRAFTOVI [Suspect]
     Active Substance: ENCORAFENIB
     Dosage: 75 MG
     Dates: start: 20230523
  2. BRAFTOVI [Suspect]
     Active Substance: ENCORAFENIB
     Dosage: 300 MG, DAILY
     Route: 048

REACTIONS (10)
  - Neoplasm progression [Unknown]
  - Malaise [Unknown]
  - Acne [Unknown]
  - Illness [Recovered/Resolved]
  - Pain [Recovered/Resolved]
  - Insomnia [Unknown]
  - Dysstasia [Unknown]
  - Hyperhidrosis [Unknown]
  - Diarrhoea [Unknown]
  - Vomiting [Unknown]

NARRATIVE: CASE EVENT DATE: 20230101
